FAERS Safety Report 24970468 (Version 2)
Quarter: 2025Q1

REPORT INFORMATION
  Report Type: Spontaneous
  Country: FR (occurrence: FR)
  Receive Date: 20250214
  Receipt Date: 20250228
  Transmission Date: 20250408
  Serious: Yes (Hospitalization)
  Sender: RHYTHM PHARMACEUTICALS, INC.
  Company Number: FR-Rhythm Pharmaceuticals, Inc.-2024RHM000618

PATIENT
  Age: 47 Year
  Sex: Female
  Weight: 100 kg

DRUGS (13)
  1. IMCIVREE [Suspect]
     Active Substance: SETMELANOTIDE
     Indication: Laurence-Moon-Bardet-Biedl syndrome
     Route: 058
     Dates: start: 20241011
  2. IMCIVREE [Suspect]
     Active Substance: SETMELANOTIDE
     Route: 058
  3. IMCIVREE [Suspect]
     Active Substance: SETMELANOTIDE
     Route: 058
  4. IMCIVREE [Suspect]
     Active Substance: SETMELANOTIDE
     Route: 058
  5. AMLODIPINE [Concomitant]
     Active Substance: AMLODIPINE BESYLATE
     Indication: Hypertension
     Route: 065
  6. RILMENIDINE [Concomitant]
     Active Substance: RILMENIDINE
     Indication: Hypertension
     Route: 065
  7. LYRICA [Concomitant]
     Active Substance: PREGABALIN
     Indication: Neuralgia
     Route: 065
  8. CYMBALTA [Concomitant]
     Active Substance: DULOXETINE HYDROCHLORIDE
     Indication: Neuralgia
     Route: 065
  9. POLYETHYLENE GLYCOL 4000 [Concomitant]
     Active Substance: POLYETHYLENE GLYCOL 4000
     Indication: Product used for unknown indication
     Route: 065
  10. RABEPRAZOLE SODIUM [Concomitant]
     Active Substance: RABEPRAZOLE SODIUM
     Indication: Product used for unknown indication
     Route: 065
  11. URAPIDIL [Concomitant]
     Active Substance: URAPIDIL
     Indication: Hypertension
     Route: 065
  12. SIMVASTATIN [Concomitant]
     Active Substance: SIMVASTATIN
     Indication: Product used for unknown indication
     Route: 065
  13. CHOLECALCIFEROL [Concomitant]
     Active Substance: CHOLECALCIFEROL
     Indication: Product used for unknown indication
     Route: 065

REACTIONS (9)
  - Malaise [Not Recovered/Not Resolved]
  - Fall [Not Recovered/Not Resolved]
  - Ankle fracture [Not Recovered/Not Resolved]
  - Dizziness [Not Recovered/Not Resolved]
  - Vomiting [Not Recovered/Not Resolved]
  - Nausea [Not Recovered/Not Resolved]
  - Off label use [Not Recovered/Not Resolved]
  - Dyspepsia [Unknown]
  - Asthenia [Unknown]

NARRATIVE: CASE EVENT DATE: 20241105
